FAERS Safety Report 20727938 (Version 1)
Quarter: 2022Q2

REPORT INFORMATION
  Report Type: Report from Study
  Country: US (occurrence: US)
  Receive Date: 20220419
  Receipt Date: 20220419
  Transmission Date: 20220720
  Serious: Yes (Other)
  Sender: FDA-Public Use
  Company Number: US-ABBVIE-22K-163-4357959-00

PATIENT
  Age: 86 Year
  Sex: Female

DRUGS (2)
  1. IMBRUVICA [Suspect]
     Active Substance: IBRUTINIB
     Indication: Product used for unknown indication
     Dosage: UNITE DOSE 420
     Route: 048
     Dates: end: 20220406
  2. IMBRUVICA [Suspect]
     Active Substance: IBRUTINIB
     Dosage: UNITE DOSE 420
     Route: 048
     Dates: start: 20220409

REACTIONS (1)
  - Cardiac pacemaker replacement [Unknown]

NARRATIVE: CASE EVENT DATE: 20220401
